FAERS Safety Report 11893622 (Version 2)
Quarter: 2016Q1

REPORT INFORMATION
  Report Type: Spontaneous
  Country: US (occurrence: US)
  Receive Date: 20160106
  Receipt Date: 20160320
  Transmission Date: 20160526
  Serious: No
  Sender: FDA-Public Use
  Company Number: US-CELGENEUS-USA-2016010577

PATIENT
  Age: 56 Year
  Sex: Male

DRUGS (3)
  1. CLARITIN [Concomitant]
     Active Substance: LORATADINE
     Indication: PRODUCT USED FOR UNKNOWN INDICATION
     Route: 065
  2. OTEZLA [Suspect]
     Active Substance: APREMILAST
     Indication: PSORIASIS
     Route: 048
     Dates: start: 20151118
  3. OTEZLA [Suspect]
     Active Substance: APREMILAST
     Dosage: STARTER DOSE
     Route: 048
     Dates: start: 20151201, end: 20151215

REACTIONS (1)
  - Mental disorder [Recovered/Resolved]

NARRATIVE: CASE EVENT DATE: 20151210
